FAERS Safety Report 16863607 (Version 1)
Quarter: 2019Q3

REPORT INFORMATION
  Report Type: Report from Study
  Country: US (occurrence: US)
  Receive Date: 20190927
  Receipt Date: 20190927
  Transmission Date: 20191005
  Serious: Yes (Other)
  Sender: FDA-Public Use
  Company Number: US-GILEAD-2019-0430821

PATIENT
  Age: 28 Year
  Sex: Female

DRUGS (3)
  1. AMBRISENTAN [Suspect]
     Active Substance: AMBRISENTAN
     Indication: PRODUCT USED FOR UNKNOWN INDICATION
     Dosage: 5 MG, QD
     Route: 048
     Dates: start: 20190501
  2. OXYGEN. [Concomitant]
     Active Substance: OXYGEN
  3. ADCIRCA [Concomitant]
     Active Substance: TADALAFIL

REACTIONS (7)
  - Insomnia [Unknown]
  - Stress [Unknown]
  - Dyspnoea exertional [Not Recovered/Not Resolved]
  - Syncope [Recovering/Resolving]
  - Eye disorder [Unknown]
  - Dysarthria [Unknown]
  - Speech disorder [Unknown]

NARRATIVE: CASE EVENT DATE: 201909
